FAERS Safety Report 7815289-6 (Version None)
Quarter: 2011Q4

REPORT INFORMATION
  Report Type: 
  Country: None (occurrence: None)
  Receive Date: 20111014
  Receipt Date: 20111011
  Transmission Date: 20120403
  Serious: No
  Sender: FDA-Public Use
  Company Number: US-TEVA-304793USA

PATIENT
  Sex: Female
  Weight: 46.308 kg

DRUGS (3)
  1. SINGULAIR [Concomitant]
     Indication: ASTHMA
     Route: 048
  2. ADVAIR DISKUS 100/50 [Concomitant]
     Indication: ASTHMA
     Route: 055
  3. PLAN B ONE-STEP [Suspect]
     Indication: POST COITAL CONTRACEPTION
     Dosage: 1.5 MILLIGRAM;
     Route: 048
     Dates: start: 20110920, end: 20110920

REACTIONS (3)
  - MENSTRUATION IRREGULAR [None]
  - NAUSEA [None]
  - PELVIC PAIN [None]
